FAERS Safety Report 23722202 (Version 1)
Quarter: 2024Q2

REPORT INFORMATION
  Report Type: Spontaneous
  Country: FR (occurrence: FR)
  Receive Date: 20240409
  Receipt Date: 20240409
  Transmission Date: 20240716
  Serious: Yes (Other)
  Sender: FDA-Public Use
  Company Number: FR-MEDACSAS-2024000047

PATIENT
  Age: 84 Year
  Sex: Male
  Weight: 74 kg

DRUGS (10)
  1. DAPTOMYCIN [Suspect]
     Active Substance: DAPTOMYCIN
     Indication: Antibiotic therapy
     Dosage: 700 MG, 1X/DAY
     Dates: start: 20221215
  2. ROSUVASTATIN [Concomitant]
     Active Substance: ROSUVASTATIN
     Dosage: 5 MG, 1X/DAY IN THE EVENING
  3. AMIODARONE [Concomitant]
     Active Substance: AMIODARONE
     Dosage: 200 MG, 1X/DAY IN THE MORNING
  4. SACUBITRIL/VALSARTAN [Concomitant]
     Dosage: 1 DF, 2X/DAY (48,6/51,4MG TABLET MORNING AND EVENING)
  5. LANSOPRAZOLE [Concomitant]
     Active Substance: LANSOPRAZOLE
     Dosage: 15 MG, 1X/DAY IN THE EVENING
  6. APIXABAN [Concomitant]
     Active Substance: APIXABAN
     Dosage: 5 MG, 1X/DAY IN THE EVENING
  7. FUROSEMIDE [Concomitant]
     Active Substance: FUROSEMIDE
     Dosage: 40 MG, 1X/DAY IN THE MORNING
  8. ASPIRIN [Concomitant]
     Active Substance: ASPIRIN
     Dosage: 160 MG, 1X/DAY AT NOON
  9. CEFEPIME [Concomitant]
     Active Substance: CEFEPIME HYDROCHLORIDE
     Dosage: 2 G, 3X/DAY (EVERY 8 HOURS)
     Dates: start: 20221215
  10. BISOPROLOL [Concomitant]
     Active Substance: BISOPROLOL\BISOPROLOL FUMARATE
     Dosage: 2.5 MG, 1X/DAY IN THE MORNING

REACTIONS (3)
  - Pneumonitis [Unknown]
  - Eosinophilia [Unknown]
  - Inflammation [Unknown]
